FAERS Safety Report 22593547 (Version 1)
Quarter: 2023Q2

REPORT INFORMATION
  Report Type: Other
  Country: US (occurrence: None)
  Receive Date: 20230613
  Receipt Date: 20230613
  Transmission Date: 20230721
  Serious: Yes (Other)
  Sender: FDA-Public Use
  Company Number: US-ROCHE-3364449

PATIENT
  Age: 60 Year
  Sex: Female

DRUGS (1)
  1. OCREVUS [Suspect]
     Active Substance: OCRELIZUMAB
     Indication: Relapsing multiple sclerosis
     Dosage: DATE OF TREATMENT: 07/DEC/2022, 01/NOV/2021, 28/SEP/2018, QUANTITY: 20ML, REFILLS: 1 YEAR
     Route: 042
     Dates: start: 20191021

REACTIONS (3)
  - Infection [Unknown]
  - Sepsis [Unknown]
  - Fatigue [Not Recovered/Not Resolved]
